FAERS Safety Report 9783895 (Version 2)
Quarter: 2014Q2

REPORT INFORMATION
  Report Type: Report from Study
  Country: CN (occurrence: CN)
  Receive Date: 20131226
  Receipt Date: 20140409
  Transmission Date: 20141212
  Serious: Yes (Hospitalization)
  Sender: FDA-Public Use
  Company Number: CN-ELI_LILLY_AND_COMPANY-CN201312008204

PATIENT
  Age: 83 Year
  Sex: Female

DRUGS (2)
  1. TERIPARATIDE [Suspect]
     Indication: OSTEOPOROSIS POSTMENOPAUSAL
     Dosage: 20 UG, QD
     Route: 058
     Dates: start: 20130910, end: 20131014
  2. INSULIN [Concomitant]
     Indication: PRODUCT USED FOR UNKNOWN INDICATION
     Dosage: UNK, UNKNOWN
     Route: 065

REACTIONS (3)
  - Pain in extremity [Recovered/Resolved]
  - Asthenia [Recovered/Resolved]
  - Blood calcium increased [Recovered/Resolved]
